FAERS Safety Report 11544386 (Version 2)
Quarter: 2015Q4

REPORT INFORMATION
  Report Type: Spontaneous
  Country: US (occurrence: US)
  Receive Date: 20150924
  Receipt Date: 20151105
  Transmission Date: 20160304
  Serious: No
  Sender: FDA-Public Use
  Company Number: US-PFIZER INC-2015304281

PATIENT
  Age: 29 Year
  Sex: Female
  Weight: 68.93 kg

DRUGS (1)
  1. IBRANCE [Suspect]
     Active Substance: PALBOCICLIB
     Dosage: UNK
     Route: 003
     Dates: start: 20150905

REACTIONS (2)
  - Accidental exposure to product [Unknown]
  - Nausea [Unknown]

NARRATIVE: CASE EVENT DATE: 201509
